FAERS Safety Report 20376466 (Version 1)
Quarter: 2022Q1

REPORT INFORMATION
  Report Type: Spontaneous
  Country: FR (occurrence: None)
  Receive Date: 20220125
  Receipt Date: 20220125
  Transmission Date: 20220423
  Serious: Yes (Other)
  Sender: FDA-Public Use
  Company Number: FR-Merck Healthcare KGaA-9290086

PATIENT
  Age: 21 Year
  Sex: Male

DRUGS (4)
  1. LEVOTHYROXINE [Suspect]
     Active Substance: LEVOTHYROXINE
     Indication: Product used for unknown indication
     Dosage: UNKNOWN DOSE
     Dates: start: 2014
  2. LEVOTHYROXINE [Suspect]
     Active Substance: LEVOTHYROXINE
     Dates: start: 20211122
  3. LEVOTHYROXINE [Suspect]
     Active Substance: LEVOTHYROXINE
     Dates: start: 20211222
  4. LEVOTHYROXINE [Suspect]
     Active Substance: LEVOTHYROXINE

REACTIONS (44)
  - Arrhythmia [Unknown]
  - Paralysis [Unknown]
  - Anxiety [Unknown]
  - Constipation [Unknown]
  - Goitre [Recovered/Resolved]
  - Fatigue [Not Recovered/Not Resolved]
  - Abdominal distension [Unknown]
  - Increased viscosity of upper respiratory secretion [Unknown]
  - Abdominal pain upper [Unknown]
  - Gastrointestinal sounds abnormal [Unknown]
  - Throat irritation [Unknown]
  - Poor peripheral circulation [Unknown]
  - Irritability [Unknown]
  - Stress [Unknown]
  - Dizziness [Unknown]
  - Pollakiuria [Unknown]
  - Tinnitus [Unknown]
  - Nasopharyngitis [Unknown]
  - Oral discharge [Unknown]
  - Paraesthesia [Unknown]
  - Myalgia [Unknown]
  - Dyspnoea [Unknown]
  - Thyroid pain [Unknown]
  - Epistaxis [Unknown]
  - Peripheral swelling [Unknown]
  - Pain in extremity [Unknown]
  - Oropharyngeal discomfort [Unknown]
  - Oropharyngeal pain [Unknown]
  - Feeling cold [Unknown]
  - Anger [Unknown]
  - Gastrointestinal disorder [Unknown]
  - Abdominal pain lower [Unknown]
  - Heart rate abnormal [Unknown]
  - Cardiac disorder [Unknown]
  - Tachycardia [Unknown]
  - Increased appetite [Unknown]
  - Palpitations [Unknown]
  - Erythema [Unknown]
  - Hyperhidrosis [Unknown]
  - Muscle spasms [Unknown]
  - Insomnia [Not Recovered/Not Resolved]
  - Diarrhoea [Unknown]
  - Body temperature increased [Unknown]
  - Weight decreased [Unknown]

NARRATIVE: CASE EVENT DATE: 20210601
